FAERS Safety Report 12939334 (Version 1)
Quarter: 2016Q4

REPORT INFORMATION
  Report Type: Report from Study
  Country: US (occurrence: US)
  Receive Date: 20161115
  Receipt Date: 20161115
  Transmission Date: 20170207
  Serious: Yes (Other)
  Sender: FDA-Public Use
  Company Number: US-ROCHE-1854754

PATIENT

DRUGS (2)
  1. DEXAMETHASONE. [Concomitant]
     Active Substance: DEXAMETHASONE
     Dosage: MEDIAN DOSE 5 MG/DAILY, RANGE: 4 TO 16 MG
     Route: 065
  2. BEVACIZUMAB [Suspect]
     Active Substance: BEVACIZUMAB
     Indication: GLIOMA
     Dosage: ON DAYS 1 AND 15 OF 28-DAY CYCLES UNTIL TREATMENT FAILURE
     Route: 042

REACTIONS (6)
  - Lymphopenia [Unknown]
  - Thrombocytopenia [Unknown]
  - Leukopenia [Unknown]
  - Neutropenia [Unknown]
  - Anaemia [Unknown]
  - Hyponatraemia [Unknown]
